FAERS Safety Report 18321064 (Version 2)
Quarter: 2020Q4

REPORT INFORMATION
  Report Type: Spontaneous
  Country: US (occurrence: US)
  Receive Date: 20200928
  Receipt Date: 20201012
  Transmission Date: 20210113
  Serious: Yes (Hospitalization)
  Sender: FDA-Public Use
  Company Number: US-AMNEAL PHARMACEUTICALS-2020-AMRX-02946

PATIENT
  Sex: Male

DRUGS (1)
  1. ISOTRETINOIN. [Suspect]
     Active Substance: ISOTRETINOIN
     Indication: PRODUCT USED FOR UNKNOWN INDICATION
     Dosage: UNK
     Route: 065
     Dates: start: 20200814, end: 20200913

REACTIONS (3)
  - Eating disorder [Unknown]
  - Arthropathy [Unknown]
  - Therapy cessation [Unknown]

NARRATIVE: CASE EVENT DATE: 2020
